FAERS Safety Report 4983212-8 (Version None)
Quarter: 2006Q2

REPORT INFORMATION
  Report Type: 
  Country: None (occurrence: None)
  Receive Date: 20060419
  Receipt Date: 20060405
  Transmission Date: 20061013
  Serious: Yes (Death, Hospitalization)
  Sender: FDA-Public Use
  Company Number: 2006-BP-03979RO

PATIENT
  Age: 78 Year
  Sex: Female

DRUGS (4)
  1. METHOTREXATE [Suspect]
     Indication: RHEUMATOID ARTHRITIS
     Dosage: 10 MG, DAILY
  2. LEVOTHYROXINE SODIUM [Concomitant]
  3. CORTISONE ACETATE TAB [Concomitant]
  4. TRAMADOL HCL [Concomitant]

REACTIONS (15)
  - ACCIDENTAL OVERDOSE [None]
  - DRUG PRESCRIBING ERROR [None]
  - DRUG TOXICITY [None]
  - ERYTHEMA [None]
  - HEPATIC HAEMORRHAGE [None]
  - HEPATIC STEATOSIS [None]
  - HEPATITIS [None]
  - INAPPROPRIATE SCHEDULE OF DRUG ADMINISTRATION [None]
  - MARROW HYPERPLASIA [None]
  - MUCOSAL INFLAMMATION [None]
  - PANCYTOPENIA [None]
  - PYREXIA [None]
  - RENAL HAEMORRHAGE [None]
  - SHOCK [None]
  - SKIN ULCER [None]
